FAERS Safety Report 9800394 (Version 2)
Quarter: 2014Q1

REPORT INFORMATION
  Report Type: Spontaneous
  Country: US (occurrence: US)
  Receive Date: 20140107
  Receipt Date: 20140205
  Transmission Date: 20141002
  Serious: No
  Sender: FDA-Public Use
  Company Number: US-009507513-1401USA001660

PATIENT
  Age: 72 Year
  Sex: Female

DRUGS (1)
  1. OXYTROL FOR WOMEN [Suspect]
     Indication: PRODUCT USED FOR UNKNOWN INDICATION
     Dosage: 1 DF, Q4D
     Route: 062

REACTIONS (3)
  - Pollakiuria [Recovering/Resolving]
  - Urine flow decreased [Recovering/Resolving]
  - Drug ineffective [Unknown]
